FAERS Safety Report 24287782 (Version 1)
Quarter: 2024Q3

REPORT INFORMATION
  Report Type: Spontaneous
  Country: US (occurrence: US)
  Receive Date: 20240905
  Receipt Date: 20240905
  Transmission Date: 20241016
  Serious: No
  Sender: BRISTOL MYERS SQUIBB
  Company Number: US-BRISTOL-MYERS SQUIBB COMPANY-2024-140671

PATIENT
  Age: 65 Year
  Sex: Female

DRUGS (4)
  1. SPRYCEL [Suspect]
     Active Substance: DASATINIB
     Indication: Chronic myeloid leukaemia
     Route: 048
     Dates: start: 202102
  2. ASPIRIN [Concomitant]
     Active Substance: ASPIRIN
     Indication: Product used for unknown indication
  3. VITAMIN B12 [Concomitant]
     Active Substance: CYANOCOBALAMIN
     Indication: Product used for unknown indication
  4. VALIUM [Concomitant]
     Active Substance: DIAZEPAM
     Indication: Product used for unknown indication

REACTIONS (8)
  - Gastrointestinal disorder [Unknown]
  - Feeling cold [Unknown]
  - Constipation [Unknown]
  - Abdominal distension [Unknown]
  - Illness [Unknown]
  - Nausea [Unknown]
  - Abdominal pain upper [Unknown]
  - Gingival disorder [Unknown]

NARRATIVE: CASE EVENT DATE: 20210201
